FAERS Safety Report 15097600 (Version 1)
Quarter: 2018Q3

REPORT INFORMATION
  Report Type: Spontaneous
  Country: ES (occurrence: ES)
  Receive Date: 20180702
  Receipt Date: 20180702
  Transmission Date: 20181010
  Serious: Yes (Disabling)
  Sender: FDA-Public Use
  Company Number: ES-LEO PHARMA-309627

PATIENT
  Age: 34 Year
  Sex: Male
  Weight: 77 kg

DRUGS (1)
  1. PROTOPIC [Suspect]
     Active Substance: TACROLIMUS
     Indication: LICHEN SCLEROSUS
     Dosage: 1 TUBE OF 30G
     Route: 061
     Dates: start: 20180321, end: 20180605

REACTIONS (2)
  - Product use in unapproved indication [Unknown]
  - Penile cancer [Recovering/Resolving]

NARRATIVE: CASE EVENT DATE: 20180409
